FAERS Safety Report 12068974 (Version 1)
Quarter: 2016Q1

REPORT INFORMATION
  Report Type: Report from Study
  Country: ZW (occurrence: ZW)
  Receive Date: 20160211
  Receipt Date: 20160211
  Transmission Date: 20160526
  Serious: Yes (Other)
  Sender: FDA-Public Use
  Company Number: ZW-HETERO LABS LTD-1047649

PATIENT
  Age: 23 Year
  Sex: Female

DRUGS (3)
  1. DIDANOSINE (VIDEX,VIDEX EC, DDL) [Concomitant]
     Dates: start: 20120725
  2. ABACAVIR. [Suspect]
     Active Substance: ABACAVIR
     Indication: HIV INFECTION
     Route: 065
     Dates: start: 20120725
  3. LOPINAVIR+RITONAVIR (KALETRA, [Concomitant]
     Route: 065
     Dates: start: 20120725

REACTIONS (2)
  - Exposure during pregnancy [Unknown]
  - Abortion spontaneous [Unknown]
